FAERS Safety Report 20684094 (Version 1)
Quarter: 2022Q2

REPORT INFORMATION
  Report Type: Spontaneous
  Country: HR (occurrence: None)
  Receive Date: 20220407
  Receipt Date: 20220407
  Transmission Date: 20220721
  Serious: Yes (Other)
  Sender: FDA-Public Use
  Company Number: HR-ROCHE-3068724

PATIENT
  Sex: Female

DRUGS (2)
  1. RIVOTRIL [Suspect]
     Active Substance: CLONAZEPAM
     Indication: Product used for unknown indication
     Dosage: 12.5 MG, DAILY (EVERY 1 DAY), 25 0.5 MG TABLETS
     Route: 048
     Dates: start: 20211127, end: 20211127
  2. OLANZAPINE [Suspect]
     Active Substance: OLANZAPINE
     Indication: Product used for unknown indication
     Dosage: 22.5 MG, DAILY (EVERY 1 DAY), 45 TABLETS OF 0.5 MG
     Route: 048
     Dates: start: 20211127, end: 20211127

REACTIONS (3)
  - Asthenia [Unknown]
  - Intentional overdose [Unknown]
  - Suicide attempt [Unknown]

NARRATIVE: CASE EVENT DATE: 20211127
